FAERS Safety Report 4426261-0 (Version None)
Quarter: 2004Q3

REPORT INFORMATION
  Report Type: 
  Country: None (occurrence: None)
  Receive Date: 20040811
  Receipt Date: 20040730
  Transmission Date: 20050211
  Serious: Yes (Hospitalization, Other)
  Sender: FDA-Public Use
  Company Number: HQWYE871702JUL04

PATIENT
  Age: 87 Year
  Sex: Male

DRUGS (6)
  1. AMIODARONE HCL [Suspect]
     Indication: ARRHYTHMIA
     Route: 048
  2. SINTROM [Suspect]
     Dosage: 3 MG 1X PER 1 DAY
     Route: 048
     Dates: start: 20000715, end: 20000915
  3. DIGOXIN [Concomitant]
  4. DIAFUSOR (GLYCERYL TRINITRATE) [Concomitant]
  5. LASIX [Concomitant]
  6. FOZITEC (FOSINOPRIL) [Concomitant]

REACTIONS (7)
  - DIVERTICULUM [None]
  - DRUG INTERACTION [None]
  - HAEMOGLOBIN DECREASED [None]
  - PLATELET COUNT DECREASED [None]
  - PROTHROMBIN TIME PROLONGED [None]
  - RECTAL HAEMORRHAGE [None]
  - X-RAY GASTROINTESTINAL TRACT ABNORMAL [None]
